FAERS Safety Report 7619553-5 (Version None)
Quarter: 2011Q3

REPORT INFORMATION
  Report Type: 
  Country: None (occurrence: None)
  Receive Date: 20110719
  Receipt Date: 20110714
  Transmission Date: 20111222
  Serious: Yes (Death, Other)
  Sender: FDA-Public Use
  Company Number: US-ELI_LILLY_AND_COMPANY-US201106003085

PATIENT
  Sex: Male
  Weight: 126.53 kg

DRUGS (1)
  1. GEMZAR [Suspect]
     Dosage: 2500 MG, ONCE
     Route: 042
     Dates: start: 20100624, end: 20100630

REACTIONS (2)
  - NEOPLASM PROGRESSION [None]
  - HEPATIC FAILURE [None]
